FAERS Safety Report 6405251-2 (Version None)
Quarter: 2009Q4

REPORT INFORMATION
  Report Type: 
  Country: None (occurrence: None)
  Receive Date: 20091016
  Receipt Date: 20091016
  Transmission Date: 20100525
  Serious: Yes (Other)
  Sender: FDA-Public Use
  Company Number: None

PATIENT
  Age: 26 Year
  Sex: Male
  Weight: 92.0802 kg

DRUGS (2)
  1. CHANTIX [Suspect]
     Indication: SMOKING CESSATION THERAPY
     Dosage: CHANTIX DAILY ORAL
     Route: 048
     Dates: start: 20090902
  2. DEPAKOTE ER [Concomitant]

REACTIONS (2)
  - AGGRESSION [None]
  - DEPRESSED MOOD [None]
